FAERS Safety Report 5054048-7 (Version None)
Quarter: 2006Q3

REPORT INFORMATION
  Report Type: 
  Country: None (occurrence: None)
  Receive Date: 20060713
  Receipt Date: 20060703
  Transmission Date: 20061208
  Serious: Yes (Life-Threatening, Hospitalization)
  Sender: FDA-Public Use
  Company Number: 2006-01449

PATIENT
  Age: 63 Year

DRUGS (3)
  1. VELCADE [Suspect]
     Indication: MULTIPLE MYELOMA
     Dates: start: 20060526, end: 20060618
  2. DEXAMETHASONE [Suspect]
     Indication: MULTIPLE MYELOMA
     Dates: end: 20060618
  3. DOXORUBICIN HCL [Suspect]
     Indication: MULTIPLE MYELOMA
     Dates: start: 20060526, end: 20060618

REACTIONS (9)
  - ATELECTASIS [None]
  - DIVERTICULUM INTESTINAL [None]
  - KLEBSIELLA INFECTION [None]
  - MELAENA [None]
  - PNEUMONIA VIRAL [None]
  - PROTEUS INFECTION [None]
  - RESPIRATORY FAILURE [None]
  - SEPSIS [None]
  - UPPER GASTROINTESTINAL HAEMORRHAGE [None]
